FAERS Safety Report 6493289-9 (Version None)
Quarter: 2009Q4

REPORT INFORMATION
  Report Type: 
  Country: None (occurrence: None)
  Receive Date: 20091214
  Receipt Date: 20091209
  Transmission Date: 20100525
  Serious: Yes (Death, Hospitalization, Other)
  Sender: FDA-Public Use
  Company Number: US-JNJFOC-20091203538

PATIENT
  Age: 31 Year
  Sex: Male

DRUGS (6)
  1. TOPAMAX [Suspect]
     Indication: EPILEPSY
     Route: 048
  2. TOPAMAX [Suspect]
     Route: 048
  3. TOPAMAX [Suspect]
     Route: 048
  4. LAMICTAL [Suspect]
     Indication: EPILEPSY
     Route: 048
  5. DEPAKOTE [Suspect]
     Indication: EPILEPSY
     Route: 048
  6. CARNITOR [Concomitant]
     Route: 048

REACTIONS (3)
  - DEATH [None]
  - PRODUCT QUALITY ISSUE [None]
  - THERAPEUTIC RESPONSE DECREASED [None]
